FAERS Safety Report 13475973 (Version 1)
Quarter: 2017Q2

REPORT INFORMATION
  Report Type: Report from Study
  Country: US (occurrence: US)
  Receive Date: 20170425
  Receipt Date: 20170425
  Transmission Date: 20170830
  Serious: Yes (Congenital Anomaly, Other)
  Sender: FDA-Public Use
  Company Number: US-UCBSA-2017015121

PATIENT
  Age: 0 Year
  Sex: Male
  Weight: 2.6 kg

DRUGS (28)
  1. ZOFRAN [Concomitant]
     Active Substance: ONDANSETRON HYDROCHLORIDE
     Dosage: 8 MG, ONCE DAILY (QD)
     Route: 064
     Dates: start: 20140213, end: 20140213
  2. TUMS [Concomitant]
     Active Substance: CALCIUM CARBONATE
     Indication: DYSPEPSIA
     Dosage: 2 DF, 4X/WEEK
     Route: 064
     Dates: start: 20140131, end: 20140328
  3. MORPHINE [Concomitant]
     Active Substance: MORPHINE
     Dosage: UNK
     Route: 064
     Dates: start: 20140201, end: 20140201
  4. LORTAB [Concomitant]
     Active Substance: ACETAMINOPHEN\HYDROCODONE BITARTRATE
     Indication: PAIN
     Dosage: 3 ML, 3X/WEEK
     Route: 064
  5. ZOFRAN [Concomitant]
     Active Substance: ONDANSETRON HYDROCHLORIDE
     Dosage: UNK
     Route: 064
     Dates: start: 20131221, end: 20131221
  6. ZOFRAN [Concomitant]
     Active Substance: ONDANSETRON HYDROCHLORIDE
     Dosage: 4 MG, ONCE DAILY (QD)
     Route: 064
     Dates: start: 20140214, end: 20140214
  7. FLEXERIL [Concomitant]
     Active Substance: CYCLOBENZAPRINE HYDROCHLORIDE
     Indication: PAIN
     Dosage: 10 MG, ONCE DAILY (QD)
     Route: 064
     Dates: start: 20140213, end: 20140214
  8. PREDNISONE. [Concomitant]
     Active Substance: PREDNISONE
     Dosage: 5 MG, ONCE DAILY (QD)
     Route: 064
     Dates: start: 20131009, end: 20131015
  9. PROBIOTICS NOS [Concomitant]
     Active Substance: PROBIOTICS NOS
     Indication: PRODUCT USED FOR UNKNOWN INDICATION
     Dosage: 1 DF, ONCE DAILY (QD)
     Route: 064
     Dates: start: 20140425, end: 20140514
  10. TUMS [Concomitant]
     Active Substance: CALCIUM CARBONATE
     Dosage: 2 DF, ONCE DAILY (QD)
     Route: 064
     Dates: start: 20140329, end: 20140514
  11. ZOFRAN [Concomitant]
     Active Substance: ONDANSETRON HYDROCHLORIDE
     Dosage: 4 MG, ONCE DAILY (QD)
     Route: 064
     Dates: start: 20131119, end: 20131223
  12. MIRALAX [Concomitant]
     Active Substance: POLYETHYLENE GLYCOL 3350
     Indication: CONSTIPATION
     Dosage: 17 MG, ONCE DAILY (QD)
     Route: 064
  13. PREDNISONE. [Concomitant]
     Active Substance: PREDNISONE
     Dosage: 15 MG, ONCE DAILY (QD)
     Route: 064
     Dates: start: 20130925, end: 20131001
  14. REGLAN [Concomitant]
     Active Substance: METOCLOPRAMIDE HYDROCHLORIDE
     Indication: NAUSEA
     Dosage: 10 MG, ONCE DAILY (QD)
     Route: 064
     Dates: start: 20131104, end: 20131118
  15. TACLONEX [Concomitant]
     Active Substance: BETAMETHASONE DIPROPIONATE\CALCIPOTRIENE\CALCIPOTRIENE HYDRATE
     Indication: PSORIASIS
     Dosage: UNK, 3X/WEEK
     Route: 064
     Dates: start: 20130908, end: 20140514
  16. TYLENOL EXTRA STRENGTH [Concomitant]
     Active Substance: ACETAMINOPHEN
     Indication: PAIN
     Dosage: 1000 MG 1.5 WEEK
     Route: 064
     Dates: start: 20130908, end: 20140514
  17. FLU [Concomitant]
     Active Substance: INFLUENZA VIRUS VACCINE
     Indication: PROPHYLAXIS
     Dosage: 1 DF, ONE TIME DOSE
     Route: 064
     Dates: start: 20131113, end: 20131113
  18. ZOFRAN [Concomitant]
     Active Substance: ONDANSETRON HYDROCHLORIDE
     Dosage: UNK, ONCE DAILY (QD)
     Route: 064
     Dates: start: 20140112, end: 20140112
  19. ZOFRAN [Concomitant]
     Active Substance: ONDANSETRON HYDROCHLORIDE
     Dosage: UNK
     Route: 064
     Dates: start: 20140303, end: 20140309
  20. PREDNISONE. [Concomitant]
     Active Substance: PREDNISONE
     Indication: CROHN^S DISEASE
     Dosage: 20 MG, ONCE DAILY (QD)
     Route: 064
     Dates: start: 20130918, end: 20130924
  21. PREDNISONE. [Concomitant]
     Active Substance: PREDNISONE
     Dosage: 10 MG, ONCE DAILY (QD)
     Route: 064
     Dates: start: 20131002, end: 20131008
  22. DPT [Concomitant]
     Active Substance: DIPHTHERIA AND TETANUS TOXOIDS AND PERTUSSIS VACCINE
     Indication: PRODUCT USED FOR UNKNOWN INDICATION
     Dosage: 1 DF, ONE TIME DOSE
     Route: 064
     Dates: start: 20140325, end: 20140325
  23. CERTOLIZUMAB PEGOL RA [Suspect]
     Active Substance: CERTOLIZUMAB PEGOL
     Indication: CROHN^S DISEASE
     Dosage: 200 MG, 2X/MONTH
     Route: 064
     Dates: start: 20130918, end: 20140514
  24. ZOFRAN [Concomitant]
     Active Substance: ONDANSETRON HYDROCHLORIDE
     Indication: NAUSEA
     Dosage: UNK, ONCE DAILY (QD)
     Route: 064
     Dates: start: 20130908, end: 20130912
  25. MORPHINE [Concomitant]
     Active Substance: MORPHINE
     Dosage: UNK
     Route: 064
     Dates: start: 20140303, end: 20140309
  26. PRENAPLUS [Concomitant]
     Indication: BLOOD IRON DECREASED
     Dosage: 1 DF, ONCE DAILY (QD)
     Route: 064
     Dates: start: 20140329, end: 20140514
  27. MORPHINE [Concomitant]
     Active Substance: MORPHINE
     Indication: PAIN
     Dosage: UNK
     Route: 064
     Dates: start: 20131221, end: 20131224
  28. ZOFRAN [Concomitant]
     Active Substance: ONDANSETRON HYDROCHLORIDE
     Indication: NAUSEA
     Dosage: UNK
     Route: 064

REACTIONS (3)
  - Foetal exposure during pregnancy [Unknown]
  - Arrhythmia [Unknown]
  - Premature baby [Unknown]

NARRATIVE: CASE EVENT DATE: 20130918
